FAERS Safety Report 7564748-2 (Version None)
Quarter: 2011Q2

REPORT INFORMATION
  Report Type: 
  Country: None (occurrence: None)
  Receive Date: 20110622
  Receipt Date: 20110307
  Transmission Date: 20111010
  Serious: Yes (Other)
  Sender: FDA-Public Use
  Company Number: US-MYLANLABS-2010S1019460

PATIENT
  Age: 43 Year
  Sex: Male
  Weight: 81.65 kg

DRUGS (9)
  1. ENABLEX [Concomitant]
  2. CLOZAPINE [Suspect]
     Indication: SCHIZOPHRENIA
     Dates: start: 20030201
  3. CIALIS [Concomitant]
  4. SERTRALINE HYDROCHLORIDE [Concomitant]
  5. CLONAZEPAM [Concomitant]
  6. CLOZAPINE [Suspect]
  7. METFORMIN HCL [Concomitant]
  8. ZOLOFT [Concomitant]
  9. ZYPREXA [Concomitant]

REACTIONS (1)
  - GRANULOCYTOPENIA [None]
